FAERS Safety Report 6441723-2 (Version None)
Quarter: 2009Q4

REPORT INFORMATION
  Report Type: 
  Country: None (occurrence: None)
  Receive Date: 20091116
  Receipt Date: 20091106
  Transmission Date: 20100525
  Serious: Yes (Hospitalization)
  Sender: FDA-Public Use
  Company Number: JP-ASTRAZENECA-2009SE02393

PATIENT
  Sex: Female
  Weight: 38 kg

DRUGS (9)
  1. BLOPRESS [Suspect]
     Indication: HYPERTENSION
     Route: 048
     Dates: end: 20090602
  2. NIFLAN [Suspect]
     Indication: LUMBAR SPINAL STENOSIS
     Route: 048
     Dates: end: 20090602
  3. PARIET [Concomitant]
     Indication: REFLUX OESOPHAGITIS
     Route: 048
     Dates: end: 20090602
  4. EVISTA [Concomitant]
     Indication: OSTEOPOROSIS
     Route: 048
     Dates: end: 20090602
  5. LOXONIN [Concomitant]
     Indication: LUMBAR SPINAL STENOSIS
     Route: 048
     Dates: end: 20090602
  6. METHYCOBAL [Concomitant]
     Indication: LUMBAR SPINAL STENOSIS
     Route: 048
     Dates: end: 20090602
  7. DEPAS [Concomitant]
     Indication: LUMBAR SPINAL STENOSIS
     Route: 048
     Dates: end: 20090602
  8. EPADEL S [Concomitant]
     Indication: LUMBAR SPINAL STENOSIS
     Route: 048
     Dates: end: 20090602
  9. GANATON [Concomitant]
     Indication: LUMBAR SPINAL STENOSIS
     Route: 048
     Dates: end: 20090602

REACTIONS (2)
  - EOSINOPHIL COUNT INCREASED [None]
  - ORGANISING PNEUMONIA [None]
